FAERS Safety Report 5956056-8 (Version None)
Quarter: 2008Q4

REPORT INFORMATION
  Report Type: 
  Country: None (occurrence: None)
  Receive Date: 20081118
  Receipt Date: 20081104
  Transmission Date: 20090506
  Serious: Yes (Other)
  Sender: FDA-Public Use
  Company Number: CZ-ROCHE-566776

PATIENT
  Age: 61 Year
  Sex: Female

DRUGS (18)
  1. CELLCEPT [Suspect]
     Route: 065
     Dates: start: 20020901, end: 20040301
  2. NEORECORMON [Suspect]
     Dosage: PER WEEK. ROUTE: SUBCUTANEOUS.
     Route: 050
     Dates: start: 20071024, end: 20080123
  3. NEORECORMON [Suspect]
     Dosage: PER WEEK. ROUTE: INTRAVENOUS. THERAPY ALTERNATE WITH EPOETIN ALFA.
     Route: 050
     Dates: start: 20020101, end: 20020101
  4. NEORECORMON [Suspect]
     Dosage: PER WEEK. ROUTE: INTRAVENOUS.
     Route: 050
     Dates: start: 20050101, end: 20061201
  5. NEORECORMON [Suspect]
     Dosage: PER WEEK. ROUTE: INTRAVENOUS.
     Route: 050
     Dates: start: 20061201, end: 20070115
  6. NEORECORMON [Suspect]
     Dosage: PER WEEK. ROUTE: SUBCUTANEOUS.
     Route: 050
     Dates: start: 20070214, end: 20070319
  7. NEORECORMON [Suspect]
     Dosage: PER WEEK. ROUTE: SUBCUTANEOUS.
     Route: 050
     Dates: start: 20070321, end: 20070601
  8. NEORECORMON [Suspect]
     Dosage: PER WEEK. ROUTE: SUBCUTANEOUS.
     Route: 050
     Dates: start: 20070604, end: 20070803
  9. NEORECORMON [Suspect]
     Dosage: PER WEEK. ROUTE: SUBCUTANEOUS.
     Route: 050
     Dates: start: 20080125, end: 20080218
  10. NEORECORMON [Suspect]
     Dosage: PER WEEK. ROUTE: SUBCUTANEOUS.
     Route: 050
     Dates: start: 20080410
  11. SANDIMMUNE [Suspect]
     Route: 065
     Dates: start: 20020901
  12. SANDIMMUNE [Suspect]
     Route: 065
     Dates: start: 20040301
  13. PREDNISONE TAB [Suspect]
     Route: 065
     Dates: start: 20020901
  14. PREDNISONE TAB [Suspect]
     Route: 065
     Dates: start: 20040301
  15. ARANESP [Concomitant]
     Route: 058
     Dates: start: 20070117, end: 20070212
  16. ARANESP [Concomitant]
     Dosage: PER WEEK.
     Route: 058
     Dates: start: 20080317, end: 20080409
  17. EPREX [Concomitant]
     Dosage: PER WEEK. ALTERNATE WITH EPOETIN BETA.
     Dates: start: 20020101, end: 20020101
  18. EPREX [Concomitant]
     Dosage: PER WEEK. ROUTE: SUBCUTANEOUS.
     Dates: start: 20070806, end: 20071022

REACTIONS (2)
  - APLASIA PURE RED CELL [None]
  - MYELODYSPLASTIC SYNDROME [None]
